FAERS Safety Report 24356779 (Version 1)
Quarter: 2024Q3

REPORT INFORMATION
  Report Type: Other
  Country: FR (occurrence: FR)
  Receive Date: 20240924
  Receipt Date: 20240924
  Transmission Date: 20241017
  Serious: Yes (Other)
  Sender: DEXCEL
  Company Number: FR-DEXPHARM-2024-3187

PATIENT
  Age: 55 Year
  Sex: Male
  Weight: 86 kg

DRUGS (11)
  1. CLOPIDOGREL [Concomitant]
     Active Substance: CLOPIDOGREL BISULFATE
  2. ATENOLOL [Concomitant]
     Active Substance: ATENOLOL
  3. ATORVASTATIN [Concomitant]
     Active Substance: ATORVASTATIN
  4. IRON [Concomitant]
     Active Substance: IRON
     Dosage: ORAL IRON
     Route: 050
  5. ACETAMINOPHEN [Concomitant]
     Active Substance: ACETAMINOPHEN
  6. ALFUZOSIN [Concomitant]
     Active Substance: ALFUZOSIN
  7. ESOMEPRAZOLE [Interacting]
     Active Substance: ESOMEPRAZOLE
     Indication: Gastrooesophageal reflux disease
  8. PAZOPANIB [Interacting]
     Active Substance: PAZOPANIB
     Indication: Renal cell carcinoma
     Dosage: 800 MG/DAY
  9. PAZOPANIB [Interacting]
     Active Substance: PAZOPANIB
     Indication: Renal cell carcinoma
     Dosage: FRACTIONATED INTO THREE DOSES (I.E., 600?MG TID)
  10. METOCLOPRAMIDE [Concomitant]
     Active Substance: METOCLOPRAMIDE
  11. NIVOLUMAB [Concomitant]
     Active Substance: NIVOLUMAB

REACTIONS (3)
  - Renal impairment [Recovered/Resolved]
  - Drug interaction [Recovered/Resolved]
  - Drug level decreased [Recovered/Resolved]
